FAERS Safety Report 5086493-8 (Version None)
Quarter: 2006Q3

REPORT INFORMATION
  Report Type: 
  Country: None (occurrence: None)
  Receive Date: 20060818
  Receipt Date: 20060803
  Transmission Date: 20061208
  Serious: Yes (Hospitalization, Other)
  Sender: FDA-Public Use
  Company Number: L06-POL-02197-01

PATIENT
  Age: 22 Year
  Sex: Female

DRUGS (3)
  1. CARBAMAZEPINE [Suspect]
     Indication: SIMPLE PARTIAL SEIZURES
     Dosage: 600 MG QD
  2. CARBAMAZEPINE [Suspect]
     Indication: SIMPLE PARTIAL SEIZURES
     Dosage: 900 MG QD
  3. VALPROIC ACID [Concomitant]

REACTIONS (10)
  - COMPUTERISED TOMOGRAM ABNORMAL [None]
  - DRUG EXPOSURE DURING PREGNANCY [None]
  - HAEMOGLOBIN DECREASED [None]
  - LEUKOPENIA [None]
  - LOSS OF CONSCIOUSNESS [None]
  - LUPUS-LIKE SYNDROME [None]
  - PARTIAL SEIZURES WITH SECONDARY GENERALISATION [None]
  - PREGNANCY [None]
  - RED BLOOD CELL COUNT DECREASED [None]
  - SOMNOLENCE [None]
